FAERS Safety Report 8032920-3 (Version None)
Quarter: 2012Q1

REPORT INFORMATION
  Report Type: 
  Country: None (occurrence: None)
  Receive Date: 20120110
  Receipt Date: 20111226
  Transmission Date: 20120608
  Serious: Yes (Hospitalization)
  Sender: FDA-Public Use
  Company Number: US-SANOFI-AVENTIS-2012SA000619

PATIENT
  Age: 64 Year
  Sex: Male

DRUGS (13)
  1. ISONIAZID [Suspect]
     Indication: PULMONARY TUBERCULOSIS
     Route: 065
  2. CHLORDIAZEPOXIDE [Concomitant]
  3. LORAZEPAM [Concomitant]
  4. MULTI-VITAMINS [Concomitant]
  5. PYRIDOXINE HCL [Concomitant]
  6. THIAMINE HCL [Concomitant]
  7. RIFAMPICIN [Suspect]
     Indication: PULMONARY TUBERCULOSIS
     Route: 065
  8. OMEPRAZOLE [Concomitant]
  9. SILDENAFIL [Concomitant]
  10. FOLIC ACID [Concomitant]
  11. FELODIPINE [Concomitant]
  12. PROPRANOLOL [Concomitant]
  13. ASPIRIN [Concomitant]

REACTIONS (11)
  - HEPATIC ENCEPHALOPATHY [None]
  - BLOOD ALKALINE PHOSPHATASE INCREASED [None]
  - ALANINE AMINOTRANSFERASE INCREASED [None]
  - ASPARTATE AMINOTRANSFERASE INCREASED [None]
  - ASCITES [None]
  - FATIGUE [None]
  - ABDOMINAL DISTENSION [None]
  - JAUNDICE [None]
  - LIVER INJURY [None]
  - BLOOD BILIRUBIN INCREASED [None]
  - ABDOMINAL DISCOMFORT [None]
